FAERS Safety Report 12827345 (Version 1)
Quarter: 2016Q4

REPORT INFORMATION
  Report Type: Spontaneous
  Country: US (occurrence: US)
  Receive Date: 20161007
  Receipt Date: 20161007
  Transmission Date: 20170207
  Serious: No
  Sender: FDA-Public Use
  Company Number: US-TARO-2016TAR00256

PATIENT
  Sex: Female

DRUGS (3)
  1. PHENYTOIN SODIUM EXTENDED [Suspect]
     Active Substance: PHENYTOIN SODIUM
     Indication: SEIZURE
     Dosage: 200 MG, 2X/DAY
     Route: 048
     Dates: start: 201601, end: 2016
  2. PHENYTOIN SODIUM EXTENDED [Suspect]
     Active Substance: PHENYTOIN SODIUM
     Dosage: 300 MG, 1X/DAY
     Route: 048
     Dates: start: 2016, end: 2016
  3. PHENYTOIN SODIUM EXTENDED [Suspect]
     Active Substance: PHENYTOIN SODIUM
     Dosage: 200 MG, 2X/DAY
     Route: 048
     Dates: start: 2016

REACTIONS (4)
  - Pruritus [Not Recovered/Not Resolved]
  - Drug effect decreased [Recovered/Resolved]
  - Product quality issue [Not Recovered/Not Resolved]
  - Underdose [Recovered/Resolved]

NARRATIVE: CASE EVENT DATE: 2016
